FAERS Safety Report 23970645 (Version 1)
Quarter: 2024Q2

REPORT INFORMATION
  Report Type: Spontaneous
  Country: CN (occurrence: CN)
  Receive Date: 20240613
  Receipt Date: 20240613
  Transmission Date: 20240716
  Serious: Yes (Hospitalization, Other)
  Sender: FDA-Public Use
  Company Number: None

PATIENT
  Age: 63 Year
  Sex: Female
  Weight: 78 kg

DRUGS (11)
  1. CYCLOPHOSPHAMIDE [Suspect]
     Active Substance: CYCLOPHOSPHAMIDE
     Indication: Breast cancer female
     Dosage: 900 MG, ONE TIME IN ONE DAY (Q3W), ROUTE: IGTT IINJECTION IN PUMP) DILUTED WITH  250 ML SODIUM CHLOR
     Route: 050
     Dates: start: 20240416, end: 20240417
  2. CYCLOPHOSPHAMIDE [Suspect]
     Active Substance: CYCLOPHOSPHAMIDE
     Indication: Metastases to lymph nodes
  3. DOCETAXEL [Suspect]
     Active Substance: DOCETAXEL\DOCETAXEL ANHYDROUS
     Indication: Breast cancer female
     Dosage: 135 MG (130 MG/M2) , ONE TIME IN ONE DAY DILUTED WITH SODIUM CHLORIDE 500 ML, AS PART OF TC REGIMEN,
     Route: 041
     Dates: start: 20240416, end: 20240417
  4. DOCETAXEL [Suspect]
     Active Substance: DOCETAXEL\DOCETAXEL ANHYDROUS
     Indication: Metastases to lymph nodes
  5. EPIRUBICIN HYDROCHLORIDE [Suspect]
     Active Substance: EPIRUBICIN HYDROCHLORIDE
     Indication: Breast cancer female
     Dosage: 90 MG, ONE TIME IN ONE DAY DILUTED WITH GLUCOSE AND SODIUM CHLORIDE 500 ML, ROUTE: INJECTION IN PUMP
     Route: 050
     Dates: start: 20240416, end: 20240416
  6. EPIRUBICIN HYDROCHLORIDE [Suspect]
     Active Substance: EPIRUBICIN HYDROCHLORIDE
     Indication: Metastases to lymph nodes
  7. SODIUM CHLORIDE [Suspect]
     Active Substance: SODIUM CHLORIDE
     Indication: Medication dilution
     Dosage: 250 ML, ONE TIME IN ONE DAY  USED TO DILUTE CYCLOPHOSPHAMIDE 900 MG, D1
     Route: 041
     Dates: start: 20240416, end: 20240417
  8. SODIUM CHLORIDE [Suspect]
     Active Substance: SODIUM CHLORIDE
     Dosage: 500 ML, ONE TIME IN ONE DAY USED TO DILUTE DOCETAXEL 135 MG, D1
     Route: 041
     Dates: start: 20240416, end: 20240417
  9. DEXTROSE\SODIUM CHLORIDE [Suspect]
     Active Substance: DEXTROSE\SODIUM CHLORIDE
     Indication: Medication dilution
     Dosage: 500 ML, ONE TIME IN ONE DAY USED TO DILUTE EPIRUBICIN HYDROCHLORIDE 90 MG, ROUTE: INJECTION IN PUMP
     Route: 050
     Dates: start: 20240416, end: 20240416
  10. PIRARUBICIN [Suspect]
     Active Substance: PIRARUBICIN
     Indication: Breast cancer female
     Dosage: 90 MG (50 MG/M2, D1, THIRD CYCLE OF CHEMOTHERAPY
     Route: 041
     Dates: start: 20240517
  11. PIRARUBICIN [Suspect]
     Active Substance: PIRARUBICIN
     Indication: Metastases to lymph nodes

REACTIONS (10)
  - Depressed level of consciousness [Unknown]
  - Breast cancer female [Unknown]
  - Condition aggravated [Unknown]
  - Myelosuppression [Not Recovered/Not Resolved]
  - Nausea [None]
  - Vomiting [Unknown]
  - Decreased appetite [Unknown]
  - Asthenia [Unknown]
  - Illness [Unknown]
  - Pallor [Unknown]

NARRATIVE: CASE EVENT DATE: 20240426
